FAERS Safety Report 25282793 (Version 2)
Quarter: 2025Q2

REPORT INFORMATION
  Report Type: Report from Study
  Country: US (occurrence: US)
  Receive Date: 20250508
  Receipt Date: 20250602
  Transmission Date: 20250717
  Serious: Yes (Hospitalization, Other)
  Sender: ETON PHARMACEUTICALS, INC
  Company Number: US-ETON PHARMACEUTICALS, INC-2025ETO000186

PATIENT

DRUGS (5)
  1. ALKINDI SPRINKLE [Suspect]
     Active Substance: HYDROCORTISONE
     Indication: Adrenocortical insufficiency acute
     Dosage: 15 MILLIGRAM, BID
     Route: 048
     Dates: start: 20250128
  2. LORAZEPAM [Concomitant]
     Active Substance: LORAZEPAM
     Indication: Product used for unknown indication
  3. SOLU-CORTEF [Concomitant]
     Active Substance: HYDROCORTISONE SODIUM SUCCINATE
     Indication: Product used for unknown indication
  4. CLONIDINE [Concomitant]
     Active Substance: CLONIDINE
     Indication: Product used for unknown indication
     Dosage: UNK, PATCH QWEEK
  5. CLONIDINE [Concomitant]
     Active Substance: CLONIDINE

REACTIONS (3)
  - Anaemia [Unknown]
  - Gastrointestinal disorder [Unknown]
  - Adrenocortical insufficiency acute [Recovering/Resolving]

NARRATIVE: CASE EVENT DATE: 20250101
